FAERS Safety Report 6338569-2 (Version None)
Quarter: 2009Q3

REPORT INFORMATION
  Report Type: 
  Country: None (occurrence: None)
  Receive Date: 20090901
  Receipt Date: 20090730
  Transmission Date: 20100115
  Serious: Yes (Hospitalization)
  Sender: FDA-Public Use
  Company Number: 8050922

PATIENT
  Age: 89 Year
  Sex: Male

DRUGS (4)
  1. THEO-24 [Suspect]
     Dosage: 200 MG PO
     Route: 048
  2. INDAPAMIDE [Suspect]
     Dosage: 2.5 MG PO
     Route: 048
  3. METHYLDOPA [Suspect]
     Dosage: 250 MG PO
     Route: 048
  4. ACETAMINOPHEN [Suspect]
     Dosage: 500 MG PO
     Route: 048

REACTIONS (12)
  - BLOOD CREATININE INCREASED [None]
  - BLOOD PRESSURE INCREASED [None]
  - DEPRESSION [None]
  - HYPOKALAEMIA [None]
  - HYPOTENSION [None]
  - MULTIPLE DRUG OVERDOSE INTENTIONAL [None]
  - RESPIRATORY RATE INCREASED [None]
  - SINUS TACHYCARDIA [None]
  - SOMNOLENCE [None]
  - SUICIDE ATTEMPT [None]
  - VENTRICULAR EXTRASYSTOLES [None]
  - VOMITING [None]
